FAERS Safety Report 12459600 (Version 1)
Quarter: 2016Q2

REPORT INFORMATION
  Report Type: Spontaneous
  Country: US (occurrence: US)
  Receive Date: 20160613
  Receipt Date: 20160613
  Transmission Date: 20160815
  Serious: Yes (Other)
  Sender: FDA-Public Use
  Company Number: US-WATSON-2016-12086

PATIENT
  Sex: Female

DRUGS (1)
  1. INDOMETACIN (UNKNOWN) [Suspect]
     Active Substance: INDOMETHACIN
     Indication: HEADACHE
     Dosage: UNK
     Route: 065

REACTIONS (1)
  - Gastrointestinal ulcer [Unknown]
